FAERS Safety Report 10185205 (Version 1)
Quarter: 2014Q2

REPORT INFORMATION
  Report Type: Spontaneous
  Country: US (occurrence: None)
  Receive Date: 20140520
  Receipt Date: 20140520
  Transmission Date: 20141212
  Serious: Yes (Life-Threatening, Hospitalization)
  Sender: FDA-Public Use
  Company Number: None

PATIENT
  Age: 21 Year
  Sex: Female
  Weight: 49.1 kg

DRUGS (1)
  1. LAMOTRIGINE [Suspect]
     Indication: BORDERLINE PERSONALITY DISORDER
     Dosage: 1 TABLET
     Route: 048
     Dates: start: 20140215, end: 20140421

REACTIONS (1)
  - Drug reaction with eosinophilia and systemic symptoms [None]
